FAERS Safety Report 4342512-5 (Version None)
Quarter: 2004Q2

REPORT INFORMATION
  Report Type: 
  Country: None (occurrence: None)
  Receive Date: 20040416
  Receipt Date: 20040405
  Transmission Date: 20050107
  Serious: Yes (Death)
  Sender: FDA-Public Use
  Company Number: 2004022994

PATIENT
  Sex: Female

DRUGS (2)
  1. SERLAIN (SERTRALINE) [Suspect]
     Indication: ILL-DEFINED DISORDER
  2. ANALGESICS (ANALGESICS) [Concomitant]

REACTIONS (1)
  - HEPATIC NECROSIS [None]
